FAERS Safety Report 10411658 (Version 1)
Quarter: 2014Q3

REPORT INFORMATION
  Report Type: Spontaneous
  Country: US (occurrence: US)
  Receive Date: 20140827
  Receipt Date: 20140827
  Transmission Date: 20150326
  Serious: Yes (Other)
  Sender: FDA-Public Use
  Company Number: US-BRISTOL-MYERS SQUIBB COMPANY-21319959

PATIENT
  Age: 67 Year
  Sex: Female
  Weight: 79.82 kg

DRUGS (7)
  1. GABAPENTIN. [Concomitant]
     Active Substance: GABAPENTIN
  2. PLAVIX [Concomitant]
     Active Substance: CLOPIDOGREL BISULFATE
  3. METFORMIN HCL XR [Concomitant]
     Active Substance: METFORMIN HYDROCHLORIDE
  4. NORCO [Concomitant]
     Active Substance: ACETAMINOPHEN\HYDROCODONE BITARTRATE
  5. ASPIRIN. [Concomitant]
     Active Substance: ASPIRIN
  6. BYETTA [Suspect]
     Active Substance: EXENATIDE
     Indication: TYPE 2 DIABETES MELLITUS
     Dosage: UNK DATES 10MCG?FROM UNK DATE REDUCED BACK TO 5MCG?ONGOING
     Route: 058
  7. GLYBURIDE. [Concomitant]
     Active Substance: GLYBURIDE

REACTIONS (6)
  - Nephrolithiasis [Not Recovered/Not Resolved]
  - Nausea [Unknown]
  - Weight decreased [Unknown]
  - Abdominal pain upper [Unknown]
  - Coronary artery disease [Recovered/Resolved]
  - Blood glucose increased [Unknown]

NARRATIVE: CASE EVENT DATE: 201404
